FAERS Safety Report 8104680-9 (Version None)
Quarter: 2012Q1

REPORT INFORMATION
  Report Type: 
  Country: None (occurrence: None)
  Receive Date: 20120201
  Receipt Date: 20120125
  Transmission Date: 20120608
  Serious: Yes (Hospitalization)
  Sender: FDA-Public Use
  Company Number: US-PFIZER INC-2011310421

PATIENT
  Sex: Male
  Weight: 63.4 kg

DRUGS (12)
  1. OCTREOTIDE [Concomitant]
     Dosage: 100 UG, UNK
     Route: 058
  2. GAS-X [Concomitant]
     Dosage: UNK
     Route: 048
  3. ALPRAZOLAM [Concomitant]
     Dosage: 0.25 MG, UNK
     Route: 048
  4. ASPIRIN [Concomitant]
     Dosage: 81 MG, UNK
     Route: 048
  5. NIACIN [Concomitant]
     Dosage: 125 MG, UNK
     Route: 048
  6. LISINOPRIL [Concomitant]
     Dosage: 5 MG, UNK
     Route: 048
  7. NOVOLOG [Concomitant]
     Dosage: 100 ML, UNK
     Route: 058
  8. TRILIPIX [Concomitant]
     Dosage: 45 MG, UNK
     Route: 048
  9. LUNESTA [Concomitant]
     Dosage: 1 MG, UNK
  10. SUTENT [Suspect]
     Dosage: 50 MG, 1X/DAY, FOR 4 WEEKS ON THEN 2 WEEKS OFF
     Route: 048
  11. PREVACID [Concomitant]
     Dosage: 15 MG, UNK
     Route: 048
  12. ZOLPIDEM TARTRATE [Concomitant]
     Dosage: 6.25 MG, UNK
     Route: 048

REACTIONS (6)
  - NAUSEA [None]
  - VOMITING [None]
  - PAIN [None]
  - DECREASED APPETITE [None]
  - PALMAR-PLANTAR ERYTHRODYSAESTHESIA SYNDROME [None]
  - ORAL HERPES [None]
